FAERS Safety Report 25772455 (Version 2)
Quarter: 2025Q4

REPORT INFORMATION
  Report Type: Spontaneous
  Country: US (occurrence: US)
  Receive Date: 20250908
  Receipt Date: 20251003
  Transmission Date: 20260117
  Serious: No
  Sender: AMGEN
  Company Number: US-AMGEN-USASP2025178013

PATIENT
  Sex: Female

DRUGS (1)
  1. ENBREL [Suspect]
     Active Substance: ETANERCEPT
     Indication: Product used for unknown indication
     Dosage: UNK
     Route: 065

REACTIONS (4)
  - Injection site erythema [Unknown]
  - Injection site papule [Unknown]
  - Injection site pruritus [Unknown]
  - Injection site pain [Unknown]
